APPROVED DRUG PRODUCT: IPRATROPIUM BROMIDE
Active Ingredient: IPRATROPIUM BROMIDE
Strength: 0.02%
Dosage Form/Route: SOLUTION;INHALATION
Application: A075867 | Product #001
Applicant: ROXANE LABORATORIES INC
Approved: Jul 22, 2002 | RLD: No | RS: No | Type: DISCN